FAERS Safety Report 8290788-4 (Version None)
Quarter: 2012Q2

REPORT INFORMATION
  Report Type: 
  Country: None (occurrence: None)
  Receive Date: 20120417
  Receipt Date: 20120410
  Transmission Date: 20120825
  Serious: Yes (Other)
  Sender: FDA-Public Use
  Company Number: US-BAYER-2012-035096

PATIENT
  Age: 71 Year
  Sex: Female
  Weight: 70 kg

DRUGS (3)
  1. ASPIRIN [Suspect]
     Dosage: 2 U, PRN
     Route: 048
     Dates: end: 20120408
  2. VALIUM [Concomitant]
  3. CYMBALTA [Concomitant]

REACTIONS (2)
  - OROPHARYNGEAL PAIN [None]
  - FOREIGN BODY [None]
